FAERS Safety Report 15333481 (Version 3)
Quarter: 2018Q4

REPORT INFORMATION
  Report Type: Report from Study
  Country: None (occurrence: US)
  Receive Date: 20180830
  Receipt Date: 20181008
  Transmission Date: 20190204
  Serious: Yes (Hospitalization, Other)
  Sender: FDA-Public Use
  Company Number: US-ABBVIE-17K-163-2068223-00

PATIENT
  Age: 56 Year
  Sex: Female

DRUGS (2)
  1. HUMIRA [Suspect]
     Active Substance: ADALIMUMAB
     Indication: PSORIATIC ARTHROPATHY
     Route: 058
     Dates: end: 20180615
  2. HUMIRA [Suspect]
     Active Substance: ADALIMUMAB
     Indication: RHEUMATOID ARTHRITIS
     Route: 058
     Dates: start: 20180803

REACTIONS (14)
  - Sensitivity to weather change [Unknown]
  - Blood cholesterol increased [Unknown]
  - Bronchitis [Unknown]
  - Anaesthetic complication [Unknown]
  - Weight decreased [Unknown]
  - Metabolic surgery [Unknown]
  - Glucose tolerance impaired [Unknown]
  - Rosacea [Unknown]
  - Hypertension [Unknown]
  - Sinusitis [Unknown]
  - Rheumatoid arthritis [Recovered/Resolved]
  - Rheumatoid arthritis [Unknown]
  - Adverse drug reaction [Unknown]
  - Pityriasis rosea [Unknown]

NARRATIVE: CASE EVENT DATE: 201705
